FAERS Safety Report 9291310 (Version 2)
Quarter: 2013Q3

REPORT INFORMATION
  Report Type: Report from Study
  Country: DE (occurrence: DE)
  Receive Date: 20130515
  Receipt Date: 20130709
  Transmission Date: 20140515
  Serious: Yes (Hospitalization)
  Sender: FDA-Public Use
  Company Number: DE-ABBOTT-13P-062-1088660-00

PATIENT
  Sex: Female

DRUGS (3)
  1. HUMIRA [Suspect]
     Indication: CROHN^S DISEASE
     Route: 058
     Dates: start: 20130204, end: 20130429
  2. HUMIRA [Suspect]
     Route: 058
     Dates: start: 20130610
  3. CORTISONE [Concomitant]
     Indication: CROHN^S DISEASE

REACTIONS (2)
  - Inflammatory marker increased [Recovered/Resolved]
  - Pain [Recovered/Resolved]
